FAERS Safety Report 18648030 (Version 1)
Quarter: 2020Q4

REPORT INFORMATION
  Report Type: Spontaneous
  Country: GB (occurrence: GB)
  Receive Date: 20201222
  Receipt Date: 20201222
  Transmission Date: 20210114
  Serious: Yes (Other)
  Sender: FDA-Public Use
  Company Number: GB-BAYER-2020-281721

PATIENT
  Age: 47 Year
  Sex: Female
  Weight: 112 kg

DRUGS (4)
  1. MIRENA [Suspect]
     Active Substance: LEVONORGESTREL
     Indication: HORMONE REPLACEMENT THERAPY
     Dosage: 20 ?G PER DAY CONTINUOUSLY
     Route: 015
  2. PROPRANOLOL [Concomitant]
     Active Substance: PROPRANOLOL HYDROCHLORIDE
     Dosage: 2 DF, QD
     Dates: start: 20200313
  3. LEVOTHYROXINE. [Concomitant]
     Active Substance: LEVOTHYROXINE
     Dosage: 1 DF, QD
     Dates: start: 20200810
  4. ESTRADIOL. [Suspect]
     Active Substance: ESTRADIOL
     Indication: HORMONE REPLACEMENT THERAPY
     Dosage: 500 ?G, QD
     Route: 061
     Dates: start: 20201113

REACTIONS (4)
  - Petit mal epilepsy [Unknown]
  - Memory impairment [Recovered/Resolved]
  - Flushing [Unknown]
  - Hyperhidrosis [Unknown]
